FAERS Safety Report 5017807-2 (Version None)
Quarter: 2006Q2

REPORT INFORMATION
  Report Type: 
  Country: None (occurrence: None)
  Receive Date: 20060530
  Receipt Date: 20050506
  Transmission Date: 20061013
  Serious: Yes (Other)
  Sender: FDA-Public Use
  Company Number: 2005057509

PATIENT
  Age: 65 Year
  Sex: Male
  Weight: 70 kg

DRUGS (3)
  1. LYRICA [Suspect]
     Indication: NEUROPATHY PERIPHERAL
     Dosage: ORAL
     Route: 048
  2. FLUOXETINE [Suspect]
     Indication: ILL-DEFINED DISORDER
  3. LEFLUNOMIDE [Concomitant]

REACTIONS (3)
  - DRUG INTERACTION [None]
  - NEUTROPENIA [None]
  - PLATELET COUNT DECREASED [None]
